FAERS Safety Report 14230767 (Version 1)
Quarter: 2017Q4

REPORT INFORMATION
  Report Type: Spontaneous
  Country: US (occurrence: US)
  Receive Date: 20171128
  Receipt Date: 20171128
  Transmission Date: 20180321
  Serious: No
  Sender: FDA-Public Use
  Company Number: US-PFIZER INC-2017508993

PATIENT
  Sex: Male
  Weight: 88.45 kg

DRUGS (11)
  1. OXYCODONE AND ACETAMINOPHEN [Concomitant]
     Active Substance: ACETAMINOPHEN\OXYCODONE HYDROCHLORIDE
     Dosage: 10-3.5MG, ONE EVERY SIX HOURS, TABLET, ORALLY
     Route: 048
  2. ESCITALOPRAM [Concomitant]
     Active Substance: ESCITALOPRAM OXALATE
     Dosage: 20 MG, 1X/DAY (20 MG, TABLET, ONCE A DAY, ORALLY)
     Route: 048
  3. LISINOPRIL. [Concomitant]
     Active Substance: LISINOPRIL
     Dosage: 10 MG, 2X/DAY (10 MG, TABLET, TWICE A DAY, ORALLY)
     Route: 048
  4. METHADONE [Concomitant]
     Active Substance: METHADONE HYDROCHLORIDE
     Dosage: 5 MG, TABLET, 2 IN THE MORNING ONE AT NIGHT, ORALLY
     Route: 048
  5. SPIRONOLACTONE. [Concomitant]
     Active Substance: SPIRONOLACTONE
     Dosage: 25 MG, 1X/DAY(25 MG, TABLET, ONCE A DAY, ORALLY)
     Route: 048
  6. FUROSEMIDE. [Concomitant]
     Active Substance: FUROSEMIDE
     Dosage: 40 MG, 1X/DAY (40 MG, TABLET, ONCE A DAY, ORALLY)
     Route: 048
  7. XELJANZ XR [Suspect]
     Active Substance: TOFACITINIB CITRATE
     Indication: RHEUMATOID ARTHRITIS
     Dosage: 11 MG, 1X/DAY (11 MG, TABLET, ONCE A DAY, ORALLY)
     Route: 048
  8. CARVEDILOL. [Concomitant]
     Active Substance: CARVEDILOL
     Dosage: 25 MG, 2X/DAY(25 MG, TABLET, TWICE A DAY, ORALLY)
     Route: 048
  9. PREDNISONE. [Concomitant]
     Active Substance: PREDNISONE
     Dosage: 10 MG, 2X/DAY (10 MG, TABLET, TWO TIMES A DAY, ORALLY)
     Route: 048
  10. CIPROFLOXACIN. [Concomitant]
     Active Substance: CIPROFLOXACIN
     Dosage: 500 MG, 2X/DAY (500 MG, TABLET, TWICE A DAY, ORALLY)
     Route: 048
  11. ATORVASTATIN [Concomitant]
     Active Substance: ATORVASTATIN
     Dosage: 40 MG, 1X/DAY (40 MG, TABLET, ONE A DAY, ORALLY)
     Route: 048

REACTIONS (2)
  - Cardiomegaly [Unknown]
  - Heart rate irregular [Unknown]
